FAERS Safety Report 5888754-9 (Version None)
Quarter: 2008Q3

REPORT INFORMATION
  Report Type: 
  Country: None (occurrence: None)
  Receive Date: 20080917
  Receipt Date: 20080902
  Transmission Date: 20090109
  Serious: Yes (Death, Other)
  Sender: FDA-Public Use
  Company Number: OPER20080109

PATIENT
  Age: 49 Year
  Sex: Female
  Weight: 55.3388 kg

DRUGS (14)
  1. OPANA ER [Suspect]
     Indication: PAIN IN EXTREMITY
     Dosage: 10 MG, 1 TAB BID, PER ORAL
     Route: 048
     Dates: start: 20080201
  2. METHADONE HCL [Suspect]
  3. XANAX [Suspect]
     Indication: ANXIETY
     Dosage: 0.5 MG, 1 TAB BID, PER ORAL
     Route: 048
  4. LORCET-HD [Concomitant]
  5. LANTUS [Concomitant]
  6. NOVOLOG [Concomitant]
  7. ZONEGRAN [Concomitant]
  8. TRILEPTAL [Concomitant]
  9. CYMBALTA [Concomitant]
  10. PLAVIX [Concomitant]
  11. PREVACID [Concomitant]
  12. REGLAN [Concomitant]
  13. HYZAAR [Concomitant]
  14. LYRICA [Concomitant]

REACTIONS (26)
  - ACCIDENTAL DEATH [None]
  - ACUTE PULMONARY OEDEMA [None]
  - ARTERIOSCLEROSIS [None]
  - BRAIN OEDEMA [None]
  - BRONCHIAL OEDEMA [None]
  - CONTUSION [None]
  - CORONARY ARTERY STENOSIS [None]
  - DIABETES MELLITUS INADEQUATE CONTROL [None]
  - DRUG ABUSE [None]
  - DRUG INTERACTION [None]
  - DRUG SCREEN POSITIVE [None]
  - DRUG TOXICITY [None]
  - EDENTULOUS [None]
  - ENDOCARDIAL FIBROSIS [None]
  - EXCORIATION [None]
  - INSOMNIA [None]
  - ISCHAEMIC CARDIOMYOPATHY [None]
  - MALAISE [None]
  - PAIN IN EXTREMITY [None]
  - PULMONARY OEDEMA [None]
  - RENAL ATROPHY [None]
  - RESTLESSNESS [None]
  - TRACHEAL OEDEMA [None]
  - UNRESPONSIVE TO STIMULI [None]
  - URINE ALCOHOL TEST POSITIVE [None]
  - VOMITING [None]
